FAERS Safety Report 6250647-5 (Version None)
Quarter: 2009Q2

REPORT INFORMATION
  Report Type: 
  Country: None (occurrence: None)
  Receive Date: 20090630
  Receipt Date: 20090618
  Transmission Date: 20091009
  Serious: Yes (Hospitalization)
  Sender: FDA-Public Use
  Company Number: PL-PFIZER INC-2009169812

PATIENT
  Age: 58 Year

DRUGS (7)
  1. SUNITINIB MALATE [Suspect]
     Indication: BREAST CANCER
     Dosage: 25 MG, 1X/DAY
     Route: 048
     Dates: start: 20080308, end: 20090202
  2. *CAPECITABINE [Suspect]
     Indication: BREAST CANCER
     Dosage: 1150MG TWICE DAILY, EVERY 3 WEEKS
     Route: 048
     Dates: start: 20080308, end: 20090126
  3. METOCARD [Concomitant]
     Indication: HYPERTENSION
     Dosage: UNK
     Dates: start: 20090202
  4. LACIPIL [Concomitant]
     Indication: HYPERTENSION
     Dosage: UNK
     Dates: start: 20090202
  5. TRITACE [Concomitant]
     Indication: HYPERTENSION
     Dosage: UNK
     Dates: start: 20090202
  6. SORBIFER DURULES [Concomitant]
     Indication: ANAEMIA
     Dosage: UNK
     Dates: start: 20090209
  7. NEUPOGEN [Concomitant]
     Indication: NEUTROPENIA
     Dates: start: 20090209, end: 20090209

REACTIONS (1)
  - FACIAL PARESIS [None]
